FAERS Safety Report 7396604-7 (Version None)
Quarter: 2011Q2

REPORT INFORMATION
  Report Type: 
  Country: None (occurrence: None)
  Receive Date: 20110406
  Receipt Date: 20110323
  Transmission Date: 20111010
  Serious: Yes (Other)
  Sender: FDA-Public Use
  Company Number: PHHY2011US24034

PATIENT
  Sex: Male

DRUGS (6)
  1. TRAMADOL [Concomitant]
  2. NEXIUM [Concomitant]
  3. LORTAB [Concomitant]
  4. LISINOPRIL [Concomitant]
  5. BETA BLOCKING AGENTS [Concomitant]
  6. TASIGNA [Suspect]
     Dosage: 200 MG, BID

REACTIONS (2)
  - HYPOAESTHESIA [None]
  - NEUROPATHY PERIPHERAL [None]
